FAERS Safety Report 15150276 (Version 1)
Quarter: 2018Q3

REPORT INFORMATION
  Report Type: Spontaneous
  Country: AT (occurrence: AT)
  Receive Date: 20180716
  Receipt Date: 20180716
  Transmission Date: 20181010
  Serious: Yes (Hospitalization)
  Sender: FDA-Public Use
  Company Number: AT-US WORLDMEDS, LLC-STA_00017548

PATIENT
  Age: 81 Year
  Sex: Male
  Weight: 76 kg

DRUGS (7)
  1. SINEMET 100/25 RET [Concomitant]
  2. MADOPAR LT 100/25MG [Concomitant]
  3. BLOPRESS 4MG [Concomitant]
  4. APOMORPHINE HYDROCHLORIDE [Suspect]
     Active Substance: APOMORPHINE HYDROCHLORIDE
     Indication: PARKINSON^S DISEASE
     Dosage: FROM 7.00 AM UNTIL 09.00 PM DAILY, NO BOLUS
     Route: 058
     Dates: start: 20150505, end: 201506
  5. MADOPAR 100/25MG [Concomitant]
  6. AZILECT [Concomitant]
     Active Substance: RASAGILINE MESYLATE
  7. MARCUMAR [Concomitant]
     Active Substance: PHENPROCOUMON

REACTIONS (5)
  - Dizziness [Recovered/Resolved]
  - Hypotension [Recovered/Resolved]
  - Hallucination [Recovered/Resolved]
  - Somnolence [Recovered/Resolved]
  - Memory impairment [Recovered/Resolved]

NARRATIVE: CASE EVENT DATE: 20150331
